FAERS Safety Report 15336275 (Version 1)
Quarter: 2018Q3

REPORT INFORMATION
  Report Type: Spontaneous
  Country: FR (occurrence: FR)
  Receive Date: 20180830
  Receipt Date: 20180830
  Transmission Date: 20181010
  Serious: Yes (Other)
  Sender: FDA-Public Use
  Company Number: FR-GEHC-2018CSU003242

PATIENT

DRUGS (1)
  1. GADOLINIUM (UNSPECIFIED) [Suspect]
     Active Substance: GADOLINIUM
     Indication: BLINDNESS CORTICAL
     Dosage: UNK UNK, SINGLE
     Route: 065

REACTIONS (1)
  - Nuclear magnetic resonance imaging brain abnormal [Recovered/Resolved]
